FAERS Safety Report 5835295-0 (Version None)
Quarter: 2008Q3

REPORT INFORMATION
  Report Type: 
  Country: None (occurrence: None)
  Receive Date: 20080804
  Receipt Date: 20080728
  Transmission Date: 20090109
  Serious: Yes (Other)
  Sender: FDA-Public Use
  Company Number: CHPA2008US12677

PATIENT
  Age: 33 Year
  Sex: Female

DRUGS (1)
  1. EXCEDRIN (MIGRAINE) [Suspect]
     Indication: HEADACHE
     Dosage: 2 DF, ONCE/SINGLE, ORAL
     Route: 048
     Dates: start: 20080727, end: 20080727

REACTIONS (4)
  - DYSPHAGIA [None]
  - LIP SWELLING [None]
  - OCULAR HYPERAEMIA [None]
  - SWELLING FACE [None]
